FAERS Safety Report 8284022-9 (Version None)
Quarter: 2012Q2

REPORT INFORMATION
  Report Type: 
  Country: None (occurrence: None)
  Receive Date: 20120413
  Receipt Date: 20110519
  Transmission Date: 20120825
  Serious: No
  Sender: FDA-Public Use
  Company Number: US-ASTRAZENECA-2009UW07466

PATIENT
  Age: 41 Year
  Sex: Female
  Weight: 72.6 kg

DRUGS (6)
  1. NEXIUM [Suspect]
     Indication: GASTROOESOPHAGEAL REFLUX DISEASE
     Route: 048
     Dates: start: 20060101
  2. LEVOXYL [Concomitant]
  3. NEXIUM [Suspect]
     Route: 048
  4. LEVOTHYROXINE SODIUM [Concomitant]
     Indication: THYROID FUNCTION TEST ABNORMAL
  5. LABETALOL HCL [Concomitant]
  6. ZOFRAN [Concomitant]

REACTIONS (5)
  - MATERNAL EXPOSURE DURING PREGNANCY [None]
  - ERUCTATION [None]
  - CONSTIPATION [None]
  - INCORRECT DOSE ADMINISTERED [None]
  - DYSPEPSIA [None]
